FAERS Safety Report 10355944 (Version 2)
Quarter: 2014Q3

REPORT INFORMATION
  Report Type: Spontaneous
  Country: CH (occurrence: CH)
  Receive Date: 20140801
  Receipt Date: 20140801
  Transmission Date: 20150326
  Serious: Yes (Hospitalization, Other)
  Sender: FDA-Public Use
  Company Number: CH-ROCHE-1434631

PATIENT
  Age: 80 Year
  Sex: Female
  Weight: 65 kg

DRUGS (3)
  1. MABTHERA [Suspect]
     Active Substance: RITUXIMAB
     Indication: B-CELL LYMPHOMA
     Route: 042
     Dates: start: 201405, end: 201405
  2. LEUKERAN [Concomitant]
     Active Substance: CHLORAMBUCIL
     Indication: CHRONIC LYMPHOCYTIC LEUKAEMIA
     Route: 065
     Dates: start: 201405, end: 201405
  3. RIBOMUSTIN [Concomitant]
     Active Substance: BENDAMUSTINE HYDROCHLORIDE
     Indication: B-CELL LYMPHOMA

REACTIONS (7)
  - Cor pulmonale [Not Recovered/Not Resolved]
  - Stress cardiomyopathy [Recovered/Resolved]
  - Lung disorder [Unknown]
  - Respiratory disorder [Unknown]
  - Systemic inflammatory response syndrome [Unknown]
  - Urinary tract infection [Unknown]
  - Labile hypertension [Unknown]

NARRATIVE: CASE EVENT DATE: 20140609
